FAERS Safety Report 8803070 (Version 2)
Quarter: 2012Q4

REPORT INFORMATION
  Report Type: 
  Country: US (occurrence: US)
  Receive Date: 20120924
  Receipt Date: 20121012
  Transmission Date: 20130627
  Serious: Yes (Hospitalization)
  Sender: FDA-Public Use
  Company Number: US-SANOFI-AVENTIS-2012SA066739

PATIENT
  Age: 62 Year
  Sex: Female
  Weight: 117.9 kg

DRUGS (16)
  1. AMARYL [Suspect]
     Indication: DIABETES
     Route: 048
     Dates: start: 2007
  2. AVANDIA [Suspect]
     Route: 065
  3. LANTUS [Concomitant]
     Indication: DIABETES
     Dosage: Dose:100 unit(s)
  4. SOLOSTAR [Concomitant]
     Indication: DIABETES
  5. CEFDINIR [Concomitant]
     Indication: COPD
     Dates: start: 20120906
  6. CEFDINIR [Concomitant]
     Indication: ASTHMA
     Dates: start: 20120906
  7. CEFPROZIL [Concomitant]
  8. CYMBALTA [Concomitant]
     Indication: FIBROMYALGIA
  9. PRILOSEC [Concomitant]
  10. JANUVIA [Concomitant]
     Indication: DIABETES
  11. COUMADIN [Concomitant]
     Indication: ATRIAL FIBRILLATION
  12. POTASSIUM [Concomitant]
     Indication: MINERAL SUPPLEMENTATION
  13. MAGNESIUM [Concomitant]
     Indication: MINERAL SUPPLEMENTATION
  14. SOTALOL [Concomitant]
  15. CILAZAPRIL [Concomitant]
     Indication: BLOOD PRESSURE HIGH
  16. FUROSEMIDE [Concomitant]
     Dosage: 40 mg 3-4 times per week

REACTIONS (1)
  - Cardiac failure congestive [Unknown]
